FAERS Safety Report 14855779 (Version 1)
Quarter: 2018Q2

REPORT INFORMATION
  Report Type: Spontaneous
  Country: US (occurrence: US)
  Receive Date: 20180507
  Receipt Date: 20180507
  Transmission Date: 20180711
  Serious: No
  Sender: FDA-Public Use
  Company Number: US-ROCHE-1984399

PATIENT
  Sex: Female

DRUGS (12)
  1. ALPRAZOLAM. [Concomitant]
     Active Substance: ALPRAZOLAM
  2. PREDNISONE. [Concomitant]
     Active Substance: PREDNISONE
  3. TEMAZEPAM. [Concomitant]
     Active Substance: TEMAZEPAM
  4. GABAPENTIN. [Concomitant]
     Active Substance: GABAPENTIN
  5. ATENOLOL. [Concomitant]
     Active Substance: ATENOLOL
  6. CLOPIDOGREL [Concomitant]
     Active Substance: CLOPIDOGREL BISULFATE
  7. OMEPRAZOLE. [Concomitant]
     Active Substance: OMEPRAZOLE
  8. CALCITONIN SALMON. [Concomitant]
     Active Substance: CALCITONIN SALMON
  9. HYDRALAZINE HCL [Concomitant]
     Active Substance: HYDRALAZINE HYDROCHLORIDE
  10. ESBRIET [Suspect]
     Active Substance: PIRFENIDONE
     Indication: SENILE OSTEOPOROSIS
     Dosage: TK 1 TAB CAPSULE1 WEEK, 2 CAPSULEES (534 MG) 1 WEEK, 3 CAPSULES (801 MG) TID
     Route: 048
     Dates: start: 20170818
  11. LACTULOSE. [Concomitant]
     Active Substance: LACTULOSE
     Route: 065
  12. ZOLPIDEM TARTRATE. [Concomitant]
     Active Substance: ZOLPIDEM TARTRATE

REACTIONS (1)
  - Dizziness [Recovered/Resolved]
